FAERS Safety Report 23934591 (Version 2)
Quarter: 2024Q2

REPORT INFORMATION
  Report Type: Report from Study
  Country: US (occurrence: US)
  Receive Date: 20240603
  Receipt Date: 20240618
  Transmission Date: 20240715
  Serious: Yes (Other)
  Sender: FDA-Public Use
  Company Number: US-APELLIS PHARMACEUTICALS-APL-2024-004128

PATIENT

DRUGS (1)
  1. PEGCETACOPLAN [Suspect]
     Active Substance: PEGCETACOPLAN
     Indication: Paroxysmal nocturnal haemoglobinuria
     Dosage: 1080 MILLIGRAM, TWICE WEEKLY, ?1080MG/20ML 2X/WEEK
     Route: 058
     Dates: start: 20240105

REACTIONS (7)
  - Fatigue [Recovered/Resolved]
  - Headache [Unknown]
  - Haematuria [Recovered/Resolved]
  - Haematuria [Unknown]
  - Asthenia [Unknown]
  - Haemoglobin decreased [Unknown]
  - Jaundice [Unknown]

NARRATIVE: CASE EVENT DATE: 20240215
